FAERS Safety Report 7079512-0 (Version None)
Quarter: 2010Q4

REPORT INFORMATION
  Report Type: 
  Country: None (occurrence: None)
  Receive Date: 20101102
  Receipt Date: 20101022
  Transmission Date: 20110411
  Serious: Yes (Other)
  Sender: FDA-Public Use
  Company Number: NO-JNJCH-2010024079

PATIENT
  Age: 38 Year
  Sex: Female

DRUGS (1)
  1. LISTERINE FLUORIDE [Suspect]
     Indication: DENTAL DISORDER PROPHYLAXIS
     Dosage: TEXT:UNKNOWN
     Route: 048
     Dates: start: 20101019, end: 20101022

REACTIONS (8)
  - BLISTER [None]
  - ORAL PAIN [None]
  - PAIN [None]
  - PRODUCT QUALITY ISSUE [None]
  - SWOLLEN TONGUE [None]
  - THERMAL BURN [None]
  - TONGUE DISORDER [None]
  - TONGUE INJURY [None]
